FAERS Safety Report 18675957 (Version 1)
Quarter: 2020Q4

REPORT INFORMATION
  Report Type: Spontaneous
  Country: JP (occurrence: JP)
  Receive Date: 20201229
  Receipt Date: 20201229
  Transmission Date: 20210114
  Serious: Yes (Other)
  Sender: FDA-Public Use
  Company Number: JP-ELI_LILLY_AND_COMPANY-JP202012013114

PATIENT
  Sex: Male

DRUGS (7)
  1. FRANDOL [Concomitant]
     Active Substance: ISOSORBIDE DINITRATE
  2. KALLIDINOGENASE [Concomitant]
     Active Substance: KALLIDINOGENASE
  3. ZALUTIA 5MG [Suspect]
     Active Substance: TADALAFIL
     Indication: POLLAKIURIA
     Dosage: 5 MG, DAILY
     Route: 048
     Dates: start: 20201202, end: 20201208
  4. LANSOPRAZOLE. [Concomitant]
     Active Substance: LANSOPRAZOLE
  5. HERBESSER [Concomitant]
     Active Substance: DILTIAZEM HYDROCHLORIDE
  6. FERROMIA [Concomitant]
     Active Substance: SODIUM FERROUS CITRATE
  7. KARY UNI [Concomitant]
     Active Substance: PIRENOXINE

REACTIONS (1)
  - Vision blurred [Unknown]

NARRATIVE: CASE EVENT DATE: 20201208
